FAERS Safety Report 15800393 (Version 1)
Quarter: 2019Q1

REPORT INFORMATION
  Report Type: Spontaneous
  Country: US (occurrence: US)
  Receive Date: 20190108
  Receipt Date: 20190108
  Transmission Date: 20190417
  Serious: No
  Sender: FDA-Public Use
  Company Number: US-VIFOR (INTERNATIONAL) INC.-VIT-2019-00061

PATIENT
  Age: 47 Year
  Sex: Female
  Weight: 97.5 kg

DRUGS (1)
  1. MIRCERA [Suspect]
     Active Substance: METHOXY POLYETHYLENE GLYCOL-EPOETIN BETA
     Indication: PRODUCT USED FOR UNKNOWN INDICATION
     Dates: start: 20181219

REACTIONS (4)
  - Throat irritation [Unknown]
  - Pruritus [Unknown]
  - Lacrimation increased [Unknown]
  - Sneezing [Unknown]

NARRATIVE: CASE EVENT DATE: 20181219
